FAERS Safety Report 8838307 (Version 2)
Quarter: 2015Q3

REPORT INFORMATION
  Report Type: Report from Study
  Country: US (occurrence: US)
  Receive Date: 20121012
  Receipt Date: 20150821
  Transmission Date: 20151125
  Serious: Yes (Hospitalization)
  Sender: FDA-Public Use
  Company Number: US-ROCHE-1139850

PATIENT
  Sex: Male
  Weight: 42.7 kg

DRUGS (9)
  1. PROTROPIN [Suspect]
     Active Substance: SOMATREM
     Indication: HYPOPITUITARISM
     Route: 058
  2. PROTROPIN [Suspect]
     Active Substance: SOMATREM
     Route: 058
  3. PROTROPIN [Suspect]
     Active Substance: SOMATREM
     Route: 058
  4. PROTROPIN [Suspect]
     Active Substance: SOMATREM
     Route: 058
  5. PROTROPIN [Suspect]
     Active Substance: SOMATREM
     Route: 058
  6. PROTROPIN [Suspect]
     Active Substance: SOMATREM
     Route: 058
  7. PROTROPIN [Suspect]
     Active Substance: SOMATREM
     Route: 058
  8. PROTROPIN [Suspect]
     Active Substance: SOMATREM
     Indication: GROWTH HORMONE DEFICIENCY
     Route: 058
  9. PROTROPIN [Suspect]
     Active Substance: SOMATREM
     Indication: BODY HEIGHT BELOW NORMAL
     Route: 058

REACTIONS (3)
  - Chest pain [Unknown]
  - Drug dose omission [Unknown]
  - Growth retardation [Unknown]
